FAERS Safety Report 13517927 (Version 1)
Quarter: 2017Q2

REPORT INFORMATION
  Report Type: Report from Study
  Country: GB (occurrence: GB)
  Receive Date: 20170505
  Receipt Date: 20170505
  Transmission Date: 20170830
  Serious: Yes (Other)
  Sender: FDA-Public Use
  Company Number: GB-MYLANLABS-2017M1026958

PATIENT

DRUGS (2)
  1. DARUNAVIR W/RITONAVIR [Interacting]
     Active Substance: DARUNAVIR\RITONAVIR
     Indication: HIV INFECTION
     Route: 065
  2. TRIAMCINOLONE [Suspect]
     Active Substance: TRIAMCINOLONE
     Indication: HIV INFECTION
     Dosage: 40MG X 3
     Route: 050

REACTIONS (2)
  - Drug interaction [Unknown]
  - Secondary adrenocortical insufficiency [Unknown]
